FAERS Safety Report 6892878-7 (Version None)
Quarter: 2010Q3

REPORT INFORMATION
  Report Type: 
  Country: None (occurrence: None)
  Receive Date: 20100731
  Receipt Date: 20081016
  Transmission Date: 20110219
  Serious: No
  Sender: FDA-Public Use
  Company Number: US-PFIZER INC-2008087518

PATIENT
  Sex: Female
  Weight: 101.6 kg

DRUGS (11)
  1. NEURONTIN [Suspect]
  2. OXYMORPHONE [Suspect]
     Route: 048
     Dates: end: 20080907
  3. MONTELUKAST [Suspect]
  4. ACETAMINOPHEN [Suspect]
  5. ROZEREM [Suspect]
  6. AMBIEN [Suspect]
  7. CELEXA [Suspect]
  8. NEXIUM [Suspect]
  9. DILTIAZEM [Suspect]
  10. LORAZEPAM [Suspect]
  11. IBUPROFEN [Suspect]

REACTIONS (1)
  - RASH [None]
